FAERS Safety Report 16904235 (Version 2)
Quarter: 2020Q1

REPORT INFORMATION
  Report Type: Spontaneous
  Country: US (occurrence: US)
  Receive Date: 20191010
  Receipt Date: 20200116
  Transmission Date: 20200409
  Serious: Yes (Other)
  Sender: FDA-Public Use
  Company Number: US-ENDO PHARMACEUTICALS INC-2019-108204

PATIENT
  Age: 49 Year
  Sex: Male
  Weight: 94.79 kg

DRUGS (4)
  1. XIAFLEX [Suspect]
     Active Substance: COLLAGENASE CLOSTRIDIUM HISTOLYTICUM
     Indication: PEYRONIE^S DISEASE
     Dosage: UNK UNKNOWN, CYCLE 3
     Route: 065
     Dates: start: 20190830, end: 2019
  2. XIAFLEX [Suspect]
     Active Substance: COLLAGENASE CLOSTRIDIUM HISTOLYTICUM
     Dosage: UNK UNKNOWN, CYCLE 1, INJECTIONS 1 AND 2
     Route: 065
     Dates: start: 2019
  3. XIAFLEX [Suspect]
     Active Substance: COLLAGENASE CLOSTRIDIUM HISTOLYTICUM
     Dosage: UNK UNKNOWN, CYCLE 2, INJECTION 1
     Route: 065
     Dates: start: 2019
  4. XIAFLEX [Suspect]
     Active Substance: COLLAGENASE CLOSTRIDIUM HISTOLYTICUM
     Dosage: UNK UNKNOWN, CYCLE 2, INJECTION 2
     Route: 065
     Dates: start: 20190809

REACTIONS (4)
  - Corpora cavernosa surgery [Recovered/Resolved]
  - Fracture of penis [Unknown]
  - Penile swelling [Recovered/Resolved]
  - Penile contusion [Recovered/Resolved]

NARRATIVE: CASE EVENT DATE: 2019
